FAERS Safety Report 9964945 (Version 4)
Quarter: 2014Q2

REPORT INFORMATION
  Report Type: Report from Study
  Country: US (occurrence: US)
  Receive Date: 20140305
  Receipt Date: 20140425
  Transmission Date: 20141212
  Serious: Yes (Hospitalization)
  Sender: FDA-Public Use
  Company Number: US-SA-2014SA016124

PATIENT
  Age: 65 Year
  Sex: Female

DRUGS (1)
  1. AUBAGIO [Suspect]
     Indication: MULTIPLE SCLEROSIS
     Route: 048
     Dates: start: 20140122, end: 20140416

REACTIONS (12)
  - Pancreatitis [Unknown]
  - Pain [Not Recovered/Not Resolved]
  - Cholecystectomy [Unknown]
  - Tenderness [Unknown]
  - Dry eye [Unknown]
  - Memory impairment [Unknown]
  - Balance disorder [Unknown]
  - Diarrhoea [Unknown]
  - Nausea [Unknown]
  - Arthralgia [Unknown]
  - Liver disorder [Unknown]
  - Alopecia [Unknown]
